FAERS Safety Report 7079023-2 (Version None)
Quarter: 2010Q4

REPORT INFORMATION
  Report Type: 
  Country: None (occurrence: None)
  Receive Date: 20101102
  Receipt Date: 20100430
  Transmission Date: 20110411
  Serious: Yes (Hospitalization)
  Sender: FDA-Public Use
  Company Number: US-BAYER-200942580NA

PATIENT
  Age: 27 Year
  Sex: Female
  Weight: 64 kg

DRUGS (2)
  1. YAZ [Suspect]
     Indication: CONTRACEPTION
     Dosage: 1 DAILY
     Route: 065
     Dates: start: 20060101, end: 20090201
  2. YASMIN [Suspect]
     Indication: CONTRACEPTION
     Route: 065
     Dates: start: 20040101, end: 20060201

REACTIONS (4)
  - ABDOMINAL PAIN UPPER [None]
  - BENIGN LYMPH NODE NEOPLASM [None]
  - CHOLECYSTITIS CHRONIC [None]
  - GALLBLADDER CHOLESTEROLOSIS [None]
